FAERS Safety Report 12343803 (Version 2)
Quarter: 2016Q2

REPORT INFORMATION
  Report Type: Spontaneous
  Country: FI (occurrence: FI)
  Receive Date: 20160507
  Receipt Date: 20160531
  Transmission Date: 20160815
  Serious: Yes (Disabling, Other)
  Sender: FDA-Public Use
  Company Number: FI-AMGEN-FINSP2016056443

PATIENT
  Age: 78 Year
  Sex: Male

DRUGS (7)
  1. XGEVA [Suspect]
     Active Substance: DENOSUMAB
     Indication: METASTASES TO BONE
     Dosage: UNK
     Route: 058
     Dates: start: 201310
  2. DOCETAXEL. [Concomitant]
     Active Substance: DOCETAXEL
  3. CABAZITAXEL [Concomitant]
     Active Substance: CABAZITAXEL
  4. XOFIGO [Concomitant]
     Active Substance: RADIUM RA-223 DICHLORIDE
  5. ZOLADEX [Concomitant]
     Active Substance: GOSERELIN ACETATE
  6. XTANDI [Concomitant]
     Active Substance: ENZALUTAMIDE
  7. ZYTIGA [Concomitant]
     Active Substance: ABIRATERONE ACETATE

REACTIONS (1)
  - Osteonecrosis of jaw [Not Recovered/Not Resolved]

NARRATIVE: CASE EVENT DATE: 20150625
